FAERS Safety Report 10014446 (Version 2)
Quarter: 2014Q1

REPORT INFORMATION
  Report Type: Report from Study
  Country: CA (occurrence: CA)
  Receive Date: 20140317
  Receipt Date: 20140317
  Transmission Date: 20141002
  Serious: Yes (Hospitalization)
  Sender: FDA-Public Use
  Company Number: CA-JNJFOC-20140216605

PATIENT
  Age: 80 Year
  Sex: Female
  Weight: 47.4 kg

DRUGS (9)
  1. REMICADE [Suspect]
     Indication: CROHN^S DISEASE
     Route: 042
     Dates: start: 20130910
  2. SYNTHROID [Concomitant]
     Route: 065
  3. MAVIK [Concomitant]
     Route: 065
  4. METOPROLOL [Concomitant]
     Route: 065
  5. AMLODIPINE [Concomitant]
     Route: 065
  6. PANTOPRAZOLE [Concomitant]
     Route: 065
  7. HYDROXYUREA [Concomitant]
     Route: 065
  8. ANAGRELIDE [Concomitant]
     Route: 065
  9. ASPIRIN [Concomitant]
     Route: 065

REACTIONS (1)
  - Cholelithiasis [Recovered/Resolved]
